FAERS Safety Report 4830205-7 (Version None)
Quarter: 2005Q4

REPORT INFORMATION
  Report Type: 
  Country: None (occurrence: None)
  Receive Date: 20051117
  Receipt Date: 20050310
  Transmission Date: 20060501
  Serious: Yes (Hospitalization, Disabling, Other)
  Sender: FDA-Public Use
  Company Number: US-MERCK-0503USA01954

PATIENT
  Age: 58 Year
  Sex: Female
  Weight: 75 kg

DRUGS (9)
  1. VIOXX [Suspect]
     Indication: ARTHRITIS
     Route: 048
     Dates: start: 20030426, end: 20040124
  2. VIOXX [Suspect]
     Route: 048
     Dates: start: 20040216, end: 20040424
  3. FUROSEMIDE [Concomitant]
     Route: 065
  4. SINGULAIR [Concomitant]
     Route: 048
  5. PREMARIN [Concomitant]
     Route: 065
     Dates: start: 20001228, end: 20040428
  6. DITROPAN [Concomitant]
     Route: 065
  7. KLOR-CON [Concomitant]
     Route: 065
  8. CAPTOPRIL [Concomitant]
     Route: 065
     Dates: start: 20000501, end: 20040424
  9. ALBUTEROL [Concomitant]
     Route: 065

REACTIONS (30)
  - ANAEMIA [None]
  - ANXIETY [None]
  - ASTHMA [None]
  - BRADYCARDIA [None]
  - BRONCHITIS CHRONIC [None]
  - CARDIAC PACEMAKER INSERTION [None]
  - CELLULITIS [None]
  - CORONARY ARTERY DISEASE [None]
  - DIABETES MELLITUS NON-INSULIN-DEPENDENT [None]
  - DIARRHOEA [None]
  - DIZZINESS [None]
  - DYSPNOEA EXERTIONAL [None]
  - EMOTIONAL DISTRESS [None]
  - EMPHYSEMA [None]
  - FATIGUE [None]
  - GALLBLADDER DISORDER [None]
  - GOITRE [None]
  - HEADACHE [None]
  - HYPERMAGNESAEMIA [None]
  - HYPOTENSION [None]
  - MYOCARDIAL INFARCTION [None]
  - NEUTROPENIA [None]
  - OEDEMA PERIPHERAL [None]
  - PULMONARY EMBOLISM [None]
  - RENAL FAILURE ACUTE [None]
  - SLEEP APNOEA SYNDROME [None]
  - TEMPERATURE INTOLERANCE [None]
  - THROMBOCYTOPENIA [None]
  - VARICOSE VEIN [None]
  - VENOUS INSUFFICIENCY [None]
